FAERS Safety Report 9537909 (Version 2)
Quarter: 2014Q2

REPORT INFORMATION
  Report Type: Spontaneous
  Country: CH (occurrence: CH)
  Receive Date: 20130919
  Receipt Date: 20140421
  Transmission Date: 20141212
  Serious: Yes (Hospitalization, Other)
  Sender: FDA-Public Use
  Company Number: PHHY2013CH100495

PATIENT
  Age: 5 Year
  Sex: Female

DRUGS (1)
  1. DEXAMETHASONE [Suspect]
     Route: 064

REACTIONS (13)
  - Encephalopathy [Unknown]
  - Adrenogenital syndrome [Unknown]
  - Lethargy [Unknown]
  - Hypoglycaemia [Unknown]
  - Loss of consciousness [Unknown]
  - Gaze palsy [Unknown]
  - Brain oedema [Unknown]
  - Visual impairment [Unknown]
  - Central nervous system lesion [Unknown]
  - Gastroenteritis [Unknown]
  - Partial seizures [Unknown]
  - Upper respiratory tract infection [Unknown]
  - Foetal exposure during pregnancy [Unknown]
